FAERS Safety Report 26190931 (Version 1)
Quarter: 2025Q4

REPORT INFORMATION
  Report Type: Spontaneous
  Country: US (occurrence: None)
  Receive Date: 20251222
  Receipt Date: 20251222
  Transmission Date: 20260118
  Serious: Yes (Other)
  Sender: FDA-CTU
  Company Number: None

PATIENT
  Age: 40 Year
  Sex: Female
  Weight: 67.5 kg

DRUGS (1)
  1. OZEMPIC [Suspect]
     Active Substance: SEMAGLUTIDE
     Indication: Type 2 diabetes mellitus
     Dosage: FREQUENCY : WEEKLY;
     Route: 058
     Dates: start: 20250301

REACTIONS (4)
  - Fungal infection [None]
  - Infection [None]
  - Glycosuria [None]
  - Infection [None]

NARRATIVE: CASE EVENT DATE: 20250301
